FAERS Safety Report 5874490-1 (Version None)
Quarter: 2008Q3

REPORT INFORMATION
  Report Type: 
  Country: None (occurrence: None)
  Receive Date: 20080909
  Receipt Date: 20080827
  Transmission Date: 20090109
  Serious: Yes (Hospitalization)
  Sender: FDA-Public Use
  Company Number: PHHY2008JP17747

PATIENT
  Age: 62 Year
  Sex: Female

DRUGS (4)
  1. NEORAL [Suspect]
     Indication: RHEUMATOID ARTHRITIS
     Dosage: 100 MG/DAY
     Route: 048
     Dates: end: 20080811
  2. RHEUMATREX [Suspect]
     Indication: RHEUMATOID ARTHRITIS
     Dosage: 6 MG/DAY
     Route: 048
     Dates: end: 20080811
  3. REMICADE [Concomitant]
     Indication: RHEUMATOID ARTHRITIS
  4. COTRIM [Concomitant]
     Indication: PNEUMONIA

REACTIONS (7)
  - COUGH [None]
  - GRANULOCYTOPENIA [None]
  - INTERSTITIAL LUNG DISEASE [None]
  - PNEUMONIA BACTERIAL [None]
  - PYREXIA [None]
  - RENAL IMPAIRMENT [None]
  - STOMATITIS [None]
